FAERS Safety Report 23182026 (Version 1)
Quarter: 2023Q4

REPORT INFORMATION
  Report Type: Spontaneous
  Country: CN (occurrence: None)
  Receive Date: 20231114
  Receipt Date: 20231114
  Transmission Date: 20240110
  Serious: Yes (Hospitalization)
  Sender: FDA-Public Use
  Company Number: CN-ROCHE-3454553

PATIENT
  Age: 59 Year
  Sex: Male
  Weight: 56 kg

DRUGS (8)
  1. MABTHERA [Suspect]
     Active Substance: RITUXIMAB
     Indication: Extranodal marginal zone B-cell lymphoma (MALT type)
     Route: 041
     Dates: start: 20231006, end: 20231006
  2. CYCLOPHOSPHAMIDE [Suspect]
     Active Substance: CYCLOPHOSPHAMIDE
     Indication: Extranodal marginal zone B-cell lymphoma (MALT type)
     Route: 041
     Dates: start: 20231007, end: 20231007
  3. EPIRUBICIN [Suspect]
     Active Substance: EPIRUBICIN
     Indication: Extranodal marginal zone B-cell lymphoma (MALT type)
     Route: 041
     Dates: start: 20231007, end: 20231007
  4. VINCRISTINE [Suspect]
     Active Substance: VINCRISTINE
     Indication: Extranodal marginal zone B-cell lymphoma (MALT type)
     Route: 041
     Dates: start: 20231007, end: 20231007
  5. PREDNISONE [Suspect]
     Active Substance: PREDNISONE
     Indication: Extranodal marginal zone B-cell lymphoma (MALT type)
     Route: 048
     Dates: start: 20231007, end: 20231011
  6. SODIUM CHLORIDE [Concomitant]
     Active Substance: SODIUM CHLORIDE
     Indication: Extranodal marginal zone B-cell lymphoma (MALT type)
     Route: 041
     Dates: start: 20231007, end: 20231007
  7. SODIUM CHLORIDE [Concomitant]
     Active Substance: SODIUM CHLORIDE
     Route: 041
     Dates: start: 20231007, end: 20231007
  8. DEXTROSE [Concomitant]
     Active Substance: DEXTROSE\DEXTROSE MONOHYDRATE
     Indication: Extranodal marginal zone B-cell lymphoma (MALT type)
     Route: 041
     Dates: start: 20231006, end: 20231006

REACTIONS (7)
  - Pollakiuria [Recovering/Resolving]
  - Dysuria [Recovering/Resolving]
  - Nausea [Recovered/Resolved]
  - Abdominal pain [Recovered/Resolved]
  - Myelosuppression [Recovering/Resolving]
  - Infection [Recovering/Resolving]
  - Off label use [Unknown]

NARRATIVE: CASE EVENT DATE: 20231008
